FAERS Safety Report 6539021-1 (Version None)
Quarter: 2010Q1

REPORT INFORMATION
  Report Type: 
  Country: None (occurrence: None)
  Receive Date: 20100115
  Receipt Date: 20100107
  Transmission Date: 20100710
  Serious: Yes (Hospitalization)
  Sender: FDA-Public Use
  Company Number: ES-BAYER-201011381GPV

PATIENT
  Age: 77 Year
  Sex: Female

DRUGS (4)
  1. NEXAVAR [Suspect]
     Indication: RENAL CELL CARCINOMA STAGE IV
     Dosage: TOTAL DAILY DOSE: 800 MG
  2. GEMCITABINE [Concomitant]
     Indication: RENAL CELL CARCINOMA STAGE IV
     Dosage: DAY 1
  3. GEMCITABINE [Concomitant]
     Dosage: DAY 8
  4. CAPECITABINE [Concomitant]
     Indication: RENAL CELL CARCINOMA STAGE IV
     Dosage: DAYS 1-14

REACTIONS (4)
  - ABDOMINAL PAIN UPPER [None]
  - AORTIC DISSECTION [None]
  - FATIGUE [None]
  - HYPERTENSION [None]
